FAERS Safety Report 9844044 (Version 3)
Quarter: 2014Q1

REPORT INFORMATION
  Report Type: Spontaneous
  Country: AU (occurrence: AU)
  Receive Date: 20140126
  Receipt Date: 20140324
  Transmission Date: 20141002
  Serious: Yes (Other)
  Sender: FDA-Public Use
  Company Number: AU-BRISTOL-MYERS SQUIBB COMPANY-20079356

PATIENT
  Age: 82 Year
  Sex: Female

DRUGS (11)
  1. ONGLYZA TABS [Suspect]
     Indication: TYPE 2 DIABETES MELLITUS
     Route: 048
     Dates: start: 201101
  2. COVERSYL PLUS [Concomitant]
     Dosage: 1 DF= 5MG/1.25MG?TABS?2.5MG
     Route: 048
  3. HIPREX [Concomitant]
     Indication: URINARY TRACT INFECTION
     Dosage: TABS
     Route: 048
  4. LASIX [Concomitant]
     Dosage: TABS
     Route: 048
  5. METFORMIN HCL TABS [Concomitant]
     Indication: TYPE 2 DIABETES MELLITUS
     Route: 048
  6. MOVICOL [Concomitant]
     Indication: CONSTIPATION
     Dosage: 1DF=13.125 MG/350.7 MG
     Route: 048
  7. NOTEN [Concomitant]
     Indication: TYPE 2 DIABETES MELLITUS
  8. PARIET [Concomitant]
     Indication: GASTROOESOPHAGEAL REFLUX DISEASE
     Dosage: PARIET EC TABLET
     Route: 048
  9. TEMAZE [Concomitant]
     Indication: INSOMNIA
     Dosage: TABS
     Route: 048
  10. VAGIFEM [Concomitant]
  11. ZOCOR [Concomitant]
     Indication: HYPERLIPIDAEMIA
     Route: 048

REACTIONS (1)
  - Cardiac failure congestive [Unknown]
